FAERS Safety Report 4372406-0 (Version None)
Quarter: 2004Q2

REPORT INFORMATION
  Report Type: 
  Country: None (occurrence: None)
  Receive Date: 20040602
  Receipt Date: 20040517
  Transmission Date: 20050107
  Serious: Yes (Hospitalization)
  Sender: FDA-Public Use
  Company Number: 2004AP02742

PATIENT
  Age: 71 Year
  Sex: Male

DRUGS (6)
  1. MEROPEN [Suspect]
     Indication: CHOLECYSTITIS
     Dosage: 0.5 G BID IV
     Route: 042
     Dates: start: 20040125, end: 20040127
  2. MEROPEN [Suspect]
     Indication: CHOLECYSTITIS
     Dosage: 0.5 GTT IV
     Route: 042
     Dates: start: 20040127, end: 20040127
  3. ZANTAC [Concomitant]
  4. VITAMEDIN INTRAVENOUS [Concomitant]
  5. PREDOPA [Concomitant]
  6. HEPARIN [Concomitant]

REACTIONS (8)
  - DEHYDRATION [None]
  - DISSEMINATED INTRAVASCULAR COAGULATION [None]
  - GASTRITIS [None]
  - HEPATIC ENZYME INCREASED [None]
  - RENAL FAILURE ACUTE [None]
  - RENAL IMPAIRMENT [None]
  - SEPSIS [None]
  - SHOCK [None]
